FAERS Safety Report 25884293 (Version 1)
Quarter: 2025Q4

REPORT INFORMATION
  Report Type: Spontaneous
  Country: US (occurrence: None)
  Receive Date: 20251003
  Receipt Date: 20251003
  Transmission Date: 20260117
  Serious: Yes (Other)
  Sender: FDA-CTU
  Company Number: None

PATIENT
  Age: 67 Year
  Sex: Female

DRUGS (3)
  1. ANASTROZOLE [Suspect]
     Active Substance: ANASTROZOLE
     Dosage: 100MG  : DAILY FOR 21 DAYS THEN 7 DAYS ?
  2. IBRANCE [Suspect]
     Active Substance: PALBOCICLIB
  3. ATORVASTATIN [Suspect]
     Active Substance: ATORVASTATIN

REACTIONS (2)
  - Metastatic neoplasm [None]
  - Therapy interrupted [None]
